FAERS Safety Report 16568012 (Version 1)
Quarter: 2019Q3

REPORT INFORMATION
  Report Type: Spontaneous
  Country: DE (occurrence: DE)
  Receive Date: 20190712
  Receipt Date: 20190712
  Transmission Date: 20191004
  Serious: Yes (Hospitalization)
  Sender: FDA-Public Use
  Company Number: DE-TEVA-2019-DE-1075149

PATIENT
  Age: 79 Year
  Sex: Male

DRUGS (8)
  1. MOVICOL [Concomitant]
     Active Substance: POLYETHYLENE GLYCOL 3350\POTASSIUM CHLORIDE\SODIUM BICARBONATE\SODIUM CHLORIDE
     Dosage: NK MG, 1-0-1-0
  2. METAMIZOL [Concomitant]
     Active Substance: METAMIZOLE SODIUM
     Dosage: NK MG, 40 GTT; MAX. 4 DAILY
  3. VIDAZA [Suspect]
     Active Substance: AZACITIDINE
     Dosage: NK MG, NK
  4. PANTOPRAZOL [Concomitant]
     Active Substance: PANTOPRAZOLE SODIUM
     Dosage: 40 MG, 1-0-0-0
  5. DIMETICON [Concomitant]
     Dosage: NK MG, 1-1-1-1
  6. VANCOMYCIN [Suspect]
     Active Substance: VANCOMYCIN
     Dosage: NK MG, UNTIL 21.07.2017; NOW PAUSED
  7. METRONIDAZOL [Suspect]
     Active Substance: METRONIDAZOLE
     Dosage: NK MG, UNTIL 21.07.2017; NOW PAUSED
  8. METOPROLOL. [Concomitant]
     Active Substance: METOPROLOL
     Dosage: 23.75 MG, 0.5-0-1-0

REACTIONS (2)
  - General physical health deterioration [Recovering/Resolving]
  - Diarrhoea [Recovering/Resolving]

NARRATIVE: CASE EVENT DATE: 20170731
